FAERS Safety Report 13261487 (Version 1)
Quarter: 2017Q1

REPORT INFORMATION
  Report Type: Report from Study
  Country: JP (occurrence: JP)
  Receive Date: 20170222
  Receipt Date: 20170222
  Transmission Date: 20170428
  Serious: Yes (Death, Hospitalization)
  Sender: FDA-Public Use
  Company Number: JP-EISAI MEDICAL RESEARCH-EC-2017-025242

PATIENT
  Age: 44 Year
  Sex: Female
  Weight: 57 kg

DRUGS (6)
  1. LENVIMA [Suspect]
     Active Substance: LENVATINIB
     Route: 048
     Dates: start: 20151028, end: 20151108
  2. CALCIUM LACTATE [Concomitant]
     Active Substance: CALCIUM LACTATE
  3. LOXOPROFEN [Concomitant]
     Active Substance: LOXOPROFEN
  4. LENVIMA [Suspect]
     Active Substance: LENVATINIB
     Indication: ANAPLASTIC THYROID CANCER
     Route: 048
     Dates: start: 20151001, end: 20151014
  5. LENVIMA [Suspect]
     Active Substance: LENVATINIB
     Route: 048
     Dates: start: 20151017, end: 20151024
  6. LEVOTHYROXINE. [Concomitant]
     Active Substance: LEVOTHYROXINE

REACTIONS (2)
  - Malignant neoplasm progression [Fatal]
  - Malaise [Recovering/Resolving]

NARRATIVE: CASE EVENT DATE: 20151028
